FAERS Safety Report 6947050-9 (Version None)
Quarter: 2010Q3

REPORT INFORMATION
  Report Type: 
  Country: None (occurrence: None)
  Receive Date: 20100827
  Receipt Date: 20090825
  Transmission Date: 20110219
  Serious: No
  Sender: FDA-Public Use
  Company Number: US-ABBOTT-09P-163-0594512-00

PATIENT
  Sex: Female
  Weight: 74.91 kg

DRUGS (7)
  1. NIASPAN [Suspect]
     Indication: BLOOD CHOLESTEROL INCREASED
     Dates: start: 20090811
  2. MULTI-VITAMINS [Concomitant]
     Indication: PRODUCT USED FOR UNKNOWN INDICATION
  3. BLACK COHOSH ROOT [Concomitant]
     Indication: HOT FLUSH
  4. IRON [Concomitant]
     Indication: ANAEMIA
  5. PRILOSEC [Concomitant]
     Indication: GASTRITIS
  6. LOVAZA [Concomitant]
     Indication: PRODUCT USED FOR UNKNOWN INDICATION
  7. UNKNOWN SINUS MEDICATION [Concomitant]
     Indication: SINUSITIS

REACTIONS (1)
  - PAIN [None]
